FAERS Safety Report 12459904 (Version 1)
Quarter: 2016Q2

REPORT INFORMATION
  Report Type: Spontaneous
  Country: FR (occurrence: FR)
  Receive Date: 20160613
  Receipt Date: 20160613
  Transmission Date: 20160815
  Serious: Yes (Hospitalization)
  Sender: FDA-Public Use
  Company Number: FR-JNJFOC-20160601532

PATIENT
  Age: 76 Year
  Sex: Male

DRUGS (16)
  1. LASILIX [Concomitant]
     Active Substance: FUROSEMIDE
  2. EUPANTOL [Concomitant]
     Active Substance: PANTOPRAZOLE SODIUM
  3. CELECTOL [Concomitant]
     Active Substance: CELIPROLOL HYDROCHLORIDE
  4. GAVISCON [Concomitant]
     Active Substance: ALUMINUM HYDROXIDE\MAGNESIUM CARBONATE
  5. LACTULOSE. [Concomitant]
     Active Substance: LACTULOSE
  6. ZOCOR [Concomitant]
     Active Substance: SIMVASTATIN
  7. TAREG [Concomitant]
     Active Substance: VALSARTAN
  8. KARDEGIC [Concomitant]
     Active Substance: ASPIRIN LYSINE
  9. LEVOTHYROX [Concomitant]
     Active Substance: LEVOTHYROXINE
  10. ZELITREX [Concomitant]
     Active Substance: VALACYCLOVIR HYDROCHLORIDE
  11. PERMIXON [Concomitant]
     Active Substance: SAW PALMETTO
  12. PARACETAMOL [Concomitant]
     Active Substance: ACETAMINOPHEN
  13. PLAVIX [Concomitant]
     Active Substance: CLOPIDOGREL BISULFATE
  14. DARZALEX [Suspect]
     Active Substance: DARATUMUMAB
     Indication: PLASMA CELL MYELOMA
     Route: 042
     Dates: start: 20160507, end: 20160521
  15. ARANESP [Concomitant]
     Active Substance: DARBEPOETIN ALFA
  16. ZYLORIC [Concomitant]
     Active Substance: ALLOPURINOL

REACTIONS (2)
  - Confusional state [Recovering/Resolving]
  - Metabolic encephalopathy [Recovering/Resolving]

NARRATIVE: CASE EVENT DATE: 20160511
